FAERS Safety Report 17253013 (Version 1)
Quarter: 2020Q1

REPORT INFORMATION
  Report Type: Spontaneous
  Country: US (occurrence: US)
  Receive Date: 20200109
  Receipt Date: 20200109
  Transmission Date: 20200409
  Serious: No
  Sender: FDA-Public Use
  Company Number: US-ABBVIE-19K-163-2863055-00

PATIENT
  Sex: Male

DRUGS (1)
  1. DUOPA [Suspect]
     Active Substance: CARBIDOPA\LEVODOPA
     Indication: PARKINSON^S DISEASE
     Route: 050

REACTIONS (5)
  - Feeling abnormal [Not Recovered/Not Resolved]
  - Device dislocation [Unknown]
  - Malaise [Not Recovered/Not Resolved]
  - Device occlusion [Unknown]
  - Gait inability [Not Recovered/Not Resolved]
